FAERS Safety Report 25340954 (Version 1)
Quarter: 2025Q2

REPORT INFORMATION
  Report Type: Spontaneous
  Country: US (occurrence: US)
  Receive Date: 20250521
  Receipt Date: 20250521
  Transmission Date: 20250716
  Serious: No
  Sender: GLAND PHARMA LTD
  Company Number: US-GLANDPHARMA-US-2025GLNSPO01180

PATIENT

DRUGS (3)
  1. MOXIFLOXACIN [Suspect]
     Active Substance: MOXIFLOXACIN
     Indication: Ulcerative keratitis
     Route: 065
  2. MAXITROL [DEXAMETHASONE;NEOMYCIN SULFATE;POLYMYXIN B SULFATE] [Concomitant]
     Indication: Ulcerative keratitis
     Route: 065
  3. VIGAMOX [Concomitant]
     Active Substance: MOXIFLOXACIN HYDROCHLORIDE
     Indication: Ulcerative keratitis
     Route: 065

REACTIONS (1)
  - Drug ineffective for unapproved indication [Unknown]
